FAERS Safety Report 23278152 (Version 8)
Quarter: 2024Q3

REPORT INFORMATION
  Report Type: Spontaneous
  Country: BR (occurrence: BR)
  Receive Date: 20231208
  Receipt Date: 20240807
  Transmission Date: 20241016
  Serious: Yes (Hospitalization, Other)
  Sender: SANDOZ
  Company Number: BR-002147023-NVSC2023BR228212

PATIENT
  Age: 75 Year
  Sex: Female

DRUGS (5)
  1. FEMARA [Suspect]
     Active Substance: LETROZOLE
     Indication: Breast cancer
     Dosage: 1 DF, QD (1 TABLET)
     Route: 048
     Dates: start: 20231018
  2. FEMARA [Suspect]
     Active Substance: LETROZOLE
     Dosage: UNK
     Route: 065
  3. KISQALI [Suspect]
     Active Substance: RIBOCICLIB
     Dosage: UNK (3 TABLETS PER DAY)
     Route: 048
  4. KISQALI [Suspect]
     Active Substance: RIBOCICLIB
     Indication: Breast cancer
     Dosage: 3 DF, QD (3 TABLETS)
     Route: 048
     Dates: start: 20231018
  5. PANTOPRAZOLE [Suspect]
     Active Substance: PANTOPRAZOLE
     Indication: Gastrointestinal disorder
     Dosage: UNK
     Route: 065

REACTIONS (24)
  - Pneumonia [Unknown]
  - Metastases to spine [Unknown]
  - Neck pain [Unknown]
  - Sluggishness [Recovering/Resolving]
  - Tremor [Recovered/Resolved]
  - Discomfort [Unknown]
  - Illness [Unknown]
  - Hepatic enzyme decreased [Recovering/Resolving]
  - Gastrointestinal disorder [Unknown]
  - Liver disorder [Unknown]
  - Pain [Recovered/Resolved]
  - Tendon rupture [Unknown]
  - Bone pain [Unknown]
  - Spinal pain [Unknown]
  - Gait disturbance [Recovering/Resolving]
  - Fatigue [Recovered/Resolved]
  - Headache [Unknown]
  - Dizziness [Unknown]
  - Fatigue [Unknown]
  - Arthralgia [Not Recovered/Not Resolved]
  - Anaemia [Not Recovered/Not Resolved]
  - Hepatic enzyme increased [Recovering/Resolving]
  - Nausea [Unknown]
  - Somnolence [Unknown]

NARRATIVE: CASE EVENT DATE: 20231001
